FAERS Safety Report 4631149-6 (Version None)
Quarter: 2005Q2

REPORT INFORMATION
  Report Type: 
  Country: None (occurrence: None)
  Receive Date: 20050407
  Receipt Date: 20050407
  Transmission Date: 20051028
  Serious: Yes (Hospitalization)
  Sender: FDA-Public Use
  Company Number: None

PATIENT
  Age: 46 Year
  Sex: Female
  Weight: 52.6173 kg

DRUGS (2)
  1. PACLITAXEL [Suspect]
     Indication: CHEMOTHERAPY
     Dosage: 20.00MG/M^2  DAILY X 5 DAYS  INTRAVENOU
     Route: 042
     Dates: start: 20050103, end: 20050218
  2. CISPLATIN [Suspect]
     Indication: CHEMOTHERAPY
     Dosage: 15.00MG/M^2   DAILY X 5 DAYS   INTRAVENOU
     Route: 042
     Dates: start: 20050103, end: 20050218

REACTIONS (1)
  - CELLULITIS [None]
